FAERS Safety Report 7571363-3 (Version None)
Quarter: 2011Q2

REPORT INFORMATION
  Report Type: 
  Country: None (occurrence: None)
  Receive Date: 20110624
  Receipt Date: 20110615
  Transmission Date: 20111010
  Serious: Yes (Life-Threatening)
  Sender: FDA-Public Use
  Company Number: B0728108A

PATIENT
  Age: 59 Year
  Sex: Female
  Weight: 126 kg

DRUGS (3)
  1. OPTINEM [Concomitant]
     Indication: INFECTION
     Dosage: 1G THREE TIMES PER DAY
     Route: 042
     Dates: start: 20110516
  2. CEFTAZIDIME SODIUM [Suspect]
     Indication: INFECTION
     Dosage: 1500MG TWICE PER DAY
     Route: 042
     Dates: start: 20110525, end: 20110526
  3. ANIDULAFUNGIN [Concomitant]
     Indication: INFECTION
     Dosage: 200MG PER DAY
     Route: 042
     Dates: start: 20110525

REACTIONS (1)
  - HAEMOLYSIS [None]
